FAERS Safety Report 4655334-2 (Version None)
Quarter: 2005Q2

REPORT INFORMATION
  Report Type: 
  Country: None (occurrence: None)
  Receive Date: 20050331
  Receipt Date: 20040827
  Transmission Date: 20051028
  Serious: No
  Sender: FDA-Public Use
  Company Number: US088869

PATIENT
  Age: 44 Year
  Sex: Male

DRUGS (5)
  1. NEULASTA [Suspect]
     Indication: CHEMOTHERAPY
     Dosage: 6 MG, 1 IN 1 DAYS, SC
     Route: 058
     Dates: start: 20040812, end: 20040812
  2. DACARBAZINE [Concomitant]
  3. DOXORUBICIN HYDROCHLORIDE [Concomitant]
  4. BLEOMYCIN SULFATE [Concomitant]
  5. VINBLASTINE [Concomitant]

REACTIONS (2)
  - DYSPNOEA [None]
  - ERYTHEMA [None]
